FAERS Safety Report 14006395 (Version 1)
Quarter: 2017Q3

REPORT INFORMATION
  Report Type: Report from Study
  Country: US (occurrence: US)
  Receive Date: 20170925
  Receipt Date: 20170925
  Transmission Date: 20171128
  Serious: Yes (Other)
  Sender: FDA-Public Use
  Company Number: US-BEH-2017083705

PATIENT
  Age: 57 Year
  Sex: Female
  Weight: 81.63 kg

DRUGS (1)
  1. ZEMAIRA [Suspect]
     Active Substance: .ALPHA.1-PROTEINASE INHIBITOR HUMAN
     Indication: ALPHA-1 ANTI-TRYPSIN DEFICIENCY
     Dosage: 5 VIALS WEEKLY
     Route: 042

REACTIONS (4)
  - Oral mucosal blistering [Unknown]
  - Blister [Unknown]
  - Stevens-Johnson syndrome [Unknown]
  - Tooth extraction [Unknown]
